FAERS Safety Report 6671753-7 (Version None)
Quarter: 2010Q2

REPORT INFORMATION
  Report Type: 
  Country: None (occurrence: None)
  Receive Date: 20100407
  Receipt Date: 20100407
  Transmission Date: 20101027
  Serious: Yes (Hospitalization)
  Sender: FDA-Public Use
  Company Number: US-ROXANE LABORATORIES, INC.-2010-RO-00385RO

PATIENT
  Age: 12 Year
  Sex: Male

DRUGS (7)
  1. MERCAPTOPURINE [Suspect]
     Indication: COLITIS ULCERATIVE
     Dosage: 75 MG
     Route: 048
     Dates: end: 20091218
  2. CITRACAL [Concomitant]
  3. FOLIC ACID [Concomitant]
     Dosage: 1 MG
  4. M.V.I. [Concomitant]
  5. SULFASALAZINE [Concomitant]
     Indication: COLITIS ULCERATIVE
     Dosage: 3000 MG
  6. FLOVENT [Concomitant]
     Indication: ASTHMA EXERCISE INDUCED
  7. XOPENEX [Concomitant]
     Indication: ASTHMA EXERCISE INDUCED

REACTIONS (3)
  - ALOPECIA [None]
  - HEART RATE IRREGULAR [None]
  - HEPATIC ENZYME INCREASED [None]
